FAERS Safety Report 8433438-6 (Version None)
Quarter: 2012Q2

REPORT INFORMATION
  Report Type: 
  Country: None (occurrence: None)
  Receive Date: 20120613
  Receipt Date: 20120604
  Transmission Date: 20120825
  Serious: Yes (Hospitalization, Other)
  Sender: FDA-Public Use
  Company Number: US-JNJFOC-20120306867

PATIENT
  Sex: Female
  Weight: 117.94 kg

DRUGS (11)
  1. PLAVIX [Suspect]
     Indication: DEEP VEIN THROMBOSIS
     Route: 048
     Dates: start: 20070101, end: 20070101
  2. FENTANYL-100 [Suspect]
     Dosage: NDC #0781724355
     Route: 062
     Dates: start: 20100101
  3. OXYCONTIN [Concomitant]
     Indication: PAIN
     Route: 048
     Dates: start: 20070101
  4. ACTOS [Suspect]
     Indication: DIABETES MELLITUS
     Route: 048
     Dates: end: 20100101
  5. ZOLOFT [Concomitant]
     Indication: DEPRESSION
     Route: 048
  6. KERLONE [Concomitant]
     Indication: TACHYCARDIA
     Route: 048
     Dates: start: 19960101
  7. ANTIDIABETIC AGENT, NOS [Concomitant]
     Indication: DIABETES MELLITUS
     Route: 065
  8. LISINOPRIL [Suspect]
     Indication: HYPERTENSION
     Route: 048
     Dates: end: 20100101
  9. COUMADIN [Concomitant]
     Indication: ANTICOAGULANT THERAPY
     Dosage: NIGHT
     Route: 048
  10. FENTANYL-100 [Suspect]
     Indication: PHANTOM PAIN
     Dosage: NDC# UNKNOWN
     Route: 062
     Dates: start: 20070101, end: 20100101
  11. METFORMIN HCL [Suspect]
     Indication: DIABETES MELLITUS
     Route: 048
     Dates: end: 20100101

REACTIONS (12)
  - RENAL FAILURE [None]
  - IMPLANT SITE INFECTION [None]
  - INFECTION [None]
  - DRUG INEFFECTIVE [None]
  - MYOCARDIAL INFARCTION [None]
  - WRONG TECHNIQUE IN DRUG USAGE PROCESS [None]
  - RASH [None]
  - DEEP VEIN THROMBOSIS [None]
  - DRUG PRESCRIBING ERROR [None]
  - INAPPROPRIATE SCHEDULE OF DRUG ADMINISTRATION [None]
  - PRODUCT QUALITY ISSUE [None]
  - PULMONARY THROMBOSIS [None]
